FAERS Safety Report 5596715-2 (Version None)
Quarter: 2008Q1

REPORT INFORMATION
  Report Type: 
  Country: None (occurrence: None)
  Receive Date: 20080118
  Receipt Date: 20080109
  Transmission Date: 20080703
  Serious: Yes (Death)
  Sender: FDA-Public Use
  Company Number: US-PFIZER INC-2008003113

PATIENT
  Age: 17 Year
  Sex: Male

DRUGS (4)
  1. OXYCODONE [Suspect]
  2. ALPRAZOLAM [Suspect]
  3. HYDROCODONE [Suspect]
  4. ETHANOL [Suspect]

REACTIONS (3)
  - CARDIAC ARREST [None]
  - DRUG ABUSE [None]
  - RESPIRATORY ARREST [None]
